FAERS Safety Report 19513802 (Version 1)
Quarter: 2021Q3

REPORT INFORMATION
  Report Type: Spontaneous
  Country: AT (occurrence: AT)
  Receive Date: 20210709
  Receipt Date: 20210709
  Transmission Date: 20211014
  Serious: Yes (Hospitalization)
  Sender: FDA-Public Use
  Company Number: NVSC2021AT146135

PATIENT

DRUGS (77)
  1. PERTUZUMAB. [Suspect]
     Active Substance: PERTUZUMAB
     Indication: PRODUCT USED FOR UNKNOWN INDICATION
     Dosage: 420 MG, Q3W (420 MG EVERY 3 WEEKS; MOST RECENT DOSE ON 21/NOV/2017)
     Route: 042
     Dates: start: 20170306
  2. NOVALGIN [Concomitant]
     Indication: RESPIRATORY TRACT INFECTION
     Dosage: UNK (ONGOING = CHECKED)
     Route: 065
     Dates: start: 20170327, end: 20191003
  3. LIXIANA [Concomitant]
     Active Substance: EDOXABAN TOSYLATE
     Indication: PULMONARY EMBOLISM
     Dosage: UNK (ONGOING = NOT CHECKED)
     Route: 065
     Dates: start: 20190315, end: 20190907
  4. LASIX [Concomitant]
     Active Substance: FUROSEMIDE
     Indication: PRODUCT USED FOR UNKNOWN INDICATION
     Dosage: UNK (ONGOING = CHECKED)
     Route: 065
  5. CORTISON [Concomitant]
     Active Substance: CORTISONE ACETATE
     Indication: RESPIRATORY TRACT INFECTION
     Dosage: UNK (ONGOING = NOT CHECKED)
     Route: 065
     Dates: start: 20190615, end: 20190615
  6. LAPATINIB [Suspect]
     Active Substance: LAPATINIB
     Indication: PRODUCT USED FOR UNKNOWN INDICATION
     Dosage: 1000 MG, QD (750 MG, QD)
     Route: 048
     Dates: start: 20181227
  7. NAVELBINE [Suspect]
     Active Substance: VINORELBINE TARTRATE
     Indication: HER2 POSITIVE BREAST CANCER
     Dosage: 50 MG (50 MG, FREQUENCY: OTHER, RECEIVED DOSE ON 30/MAY/2017, MOST RECENT DOSE PRIOR TO THE EVENT: 2
     Route: 048
     Dates: start: 20170306
  8. TRASTUZUMAB EMTANSINE [Suspect]
     Active Substance: ADO-TRASTUZUMAB EMTANSINE
     Indication: PRODUCT USED FOR UNKNOWN INDICATION
     Dosage: 3.6 MG/M2, Q3W
     Route: 042
     Dates: start: 20171212, end: 20180424
  9. TRASTUZUMAB EMTANSINE [Suspect]
     Active Substance: ADO-TRASTUZUMAB EMTANSINE
     Dosage: 3.3 MG/M2, Q3W
     Route: 042
     Dates: start: 20180515, end: 20180813
  10. VENLAFAB [Concomitant]
     Active Substance: VENLAFAXINE HYDROCHLORIDE
     Indication: PRODUCT USED FOR UNKNOWN INDICATION
     Dosage: UNK (UNK)
     Route: 065
     Dates: start: 20190315, end: 20190907
  11. NOVALGIN [Concomitant]
     Dosage: UNK (UNK)
     Route: 065
     Dates: start: 20171212, end: 20190907
  12. NOVALGIN [Concomitant]
     Dosage: UNK (ONGOING = NOT CHECKED)
     Route: 065
     Dates: start: 20190315, end: 20190907
  13. TEMESTA [Concomitant]
     Dosage: UNK (ONGOING = CHECKED)
     Route: 065
     Dates: start: 20190226
  14. FENISTIL [Concomitant]
     Active Substance: DIMETHINDENE
     Indication: CHILLS
     Dosage: UNK (UNK)
     Route: 065
     Dates: start: 20170306, end: 20170306
  15. MIRTAZAPIN [Concomitant]
     Active Substance: MIRTAZAPINE
     Indication: PRODUCT USED FOR UNKNOWN INDICATION
     Dosage: UNK (ONGOING = NOT CHECKED)
     Route: 065
     Dates: start: 20190315, end: 20190907
  16. PANTOLOC [Concomitant]
     Active Substance: PANTOPRAZOLE SODIUM
     Dosage: UNK (UNK)
     Route: 065
     Dates: start: 20170302
  17. DOXYCYCLINE. [Concomitant]
     Active Substance: DOXYCYCLINE
     Indication: RESPIRATORY TRACT INFECTION
     Dosage: UNK (UNK)
     Route: 065
     Dates: start: 20190502, end: 20190509
  18. MEXALEN [Concomitant]
     Active Substance: ACETAMINOPHEN
     Indication: PRODUCT USED FOR UNKNOWN INDICATION
     Dosage: UNK (UNK)
     Route: 065
     Dates: start: 20170327, end: 20170327
  19. LAEVOLAC [Concomitant]
     Active Substance: LACTULOSE
     Indication: PRODUCT USED FOR UNKNOWN INDICATION
     Dosage: UNK
     Route: 065
     Dates: start: 20171212, end: 20190907
  20. AUGMENTIN [Concomitant]
     Active Substance: AMOXICILLIN\CLAVULANATE POTASSIUM
     Indication: RESPIRATORY TRACT INFECTION
     Dosage: UNK (UNK)
     Route: 065
     Dates: start: 20190509, end: 20190516
  21. ULSAL [Concomitant]
     Active Substance: RANITIDINE HYDROCHLORIDE
     Indication: CHILLS
     Dosage: UNK (UNK)
     Route: 065
     Dates: start: 20170306, end: 20170306
  22. SOLU?DACORTIN [Concomitant]
     Active Substance: PREDNISOLONE SODIUM SUCCINATE
     Indication: CHILLS
     Dosage: UNK
     Route: 065
     Dates: start: 20170306, end: 20170306
  23. KYTRIL [Concomitant]
     Active Substance: GRANISETRON HYDROCHLORIDE
     Indication: PRODUCT USED FOR UNKNOWN INDICATION
     Dosage: UNK
     Route: 065
     Dates: start: 20171212, end: 20180813
  24. ZYRTEC [Concomitant]
     Active Substance: CETIRIZINE HYDROCHLORIDE
     Indication: PRURITUS
     Dosage: UNK
     Route: 065
     Dates: start: 20170327, end: 20171215
  25. XELODA [Suspect]
     Active Substance: CAPECITABINE
     Indication: HER2 POSITIVE BREAST CANCER
     Dosage: 3500 MG, QD (3500 MG, DAILY, RECEIVED DOSE ON 10/SEP/2018, MOST RECENT DOSE PRIOR TO THE EVENT: 2019
     Route: 048
     Dates: start: 20180904
  26. NOVALGIN [Concomitant]
     Dosage: UNK (ONGOING = NOT CHECKED)
     Route: 065
     Dates: start: 20170327, end: 20191003
  27. NOVALGIN [Concomitant]
     Dosage: UNK (UNK)
     Route: 065
     Dates: start: 20190615, end: 20190615
  28. HYDAL [Concomitant]
     Active Substance: HYDROMORPHONE HYDROCHLORIDE
     Dosage: UNK
     Route: 065
     Dates: start: 20181227, end: 20190907
  29. FORTECORTIN [Concomitant]
     Active Substance: DEXAMETHASONE
     Indication: PRODUCT USED FOR UNKNOWN INDICATION
     Dosage: UNK
     Route: 065
     Dates: start: 20170829, end: 20180813
  30. LASIX [Concomitant]
     Active Substance: FUROSEMIDE
     Dosage: UNK (ONGOING = NOT CHECKED )
     Route: 065
     Dates: end: 20190907
  31. PARACODIN [Concomitant]
     Dosage: UNK
     Route: 065
     Dates: start: 20190510
  32. ZOLPIDEM [Concomitant]
     Active Substance: ZOLPIDEM TARTRATE
     Indication: PRODUCT USED FOR UNKNOWN INDICATION
     Dosage: UNK
     Route: 065
     Dates: start: 20190215, end: 20190315
  33. LYRICA [Concomitant]
     Active Substance: PREGABALIN
     Dosage: UNK
     Route: 065
     Dates: start: 20181227, end: 20190226
  34. ULSAL [Concomitant]
     Active Substance: RANITIDINE HYDROCHLORIDE
     Dosage: UNK
     Route: 065
     Dates: start: 20170327, end: 20180813
  35. VINORELBINE [Suspect]
     Active Substance: VINORELBINE TARTRATE
     Dosage: 50 MG
     Route: 048
     Dates: start: 20170627, end: 20170718
  36. LAPATINIB [Suspect]
     Active Substance: LAPATINIB
     Dosage: 750 MG, QD
     Route: 048
     Dates: start: 20190116, end: 20190206
  37. TRASTUZUMAB. [Suspect]
     Active Substance: TRASTUZUMAB
     Indication: HER2 POSITIVE BREAST CANCER
     Dosage: 480 MG (RECEIVED DOSE ON 21/NOV/2017, MOST RECENT DOSE PRIOR TO THE EVENT: 07/MAY/2019, 27/MAY/2019,
     Route: 042
     Dates: start: 20170306
  38. HYDAL [Concomitant]
     Active Substance: HYDROMORPHONE HYDROCHLORIDE
     Dosage: UNK (UNK)
     Route: 065
     Dates: start: 20180628, end: 20190226
  39. HYDAL [Concomitant]
     Active Substance: HYDROMORPHONE HYDROCHLORIDE
     Dosage: UNK (ONGOING = NOT CHECKED)
     Route: 065
     Dates: start: 20181227, end: 20190907
  40. DAFLON [Concomitant]
     Dosage: UNK (ONGOING = CHECKED)
     Route: 065
  41. DAFLON [Concomitant]
     Dosage: UNK (ONGOING = NOT CHECKED)
     Route: 065
     Dates: start: 20171212, end: 20190907
  42. PANTOLOC [Concomitant]
     Active Substance: PANTOPRAZOLE SODIUM
     Indication: PRODUCT USED FOR UNKNOWN INDICATION
     Dosage: UNK (ONGOING = CHECKED)
     Route: 065
     Dates: start: 20170302
  43. TRITTICO [Concomitant]
     Active Substance: TRAZODONE HYDROCHLORIDE
     Indication: PRODUCT USED FOR UNKNOWN INDICATION
     Dosage: UNK
     Route: 065
  44. LOVENOX [Concomitant]
     Active Substance: ENOXAPARIN SODIUM
     Dosage: UNK (UNK)
     Route: 065
     Dates: start: 20190312, end: 20190315
  45. PASPERTIN [Concomitant]
     Dosage: UNK (UNK)
     Route: 065
     Dates: start: 20171212, end: 20190907
  46. EMEND [Concomitant]
     Active Substance: APREPITANT
     Indication: PRODUCT USED FOR UNKNOWN INDICATION
     Dosage: UNK (UNK)
     Route: 065
     Dates: start: 20180127, end: 20180815
  47. DEXAMETHASON [Concomitant]
     Active Substance: DEXAMETHASONE
     Indication: PRODUCT USED FOR UNKNOWN INDICATION
     Dosage: UNK (UNK)
     Route: 065
     Dates: start: 20170829, end: 20180813
  48. BUPRENORPHINE. [Concomitant]
     Active Substance: BUPRENORPHINE
     Indication: PRODUCT USED FOR UNKNOWN INDICATION
     Dosage: UNK
     Route: 065
  49. NOVALGIN [Concomitant]
     Dosage: UNK (ONGOING = CHECKED)
     Route: 065
     Dates: start: 20190315, end: 20191003
  50. HYDAL [Concomitant]
     Active Substance: HYDROMORPHONE HYDROCHLORIDE
     Indication: BACK PAIN
     Dosage: UNK (UNK)
     Route: 065
     Dates: start: 20180403, end: 20180628
  51. AMOXICILLIN. [Concomitant]
     Active Substance: AMOXICILLIN
     Indication: VASCULAR DEVICE INFECTION
     Dosage: UNK
     Route: 065
     Dates: start: 20180215, end: 20180215
  52. LASIX [Concomitant]
     Active Substance: FUROSEMIDE
     Dosage: UNK (ONGOING = CHECKED)
     Route: 065
     Dates: end: 20190907
  53. BAMBEC [Concomitant]
     Active Substance: BAMBUTEROL HYDROCHLORIDE
     Indication: PRODUCT USED FOR UNKNOWN INDICATION
     Dosage: UNK
     Route: 065
  54. CLAVAMOX [Concomitant]
     Active Substance: AMOXICILLIN\CLAVULANATE POTASSIUM
     Indication: VASCULAR DEVICE INFECTION
     Dosage: UNK
     Route: 065
     Dates: start: 20180215, end: 20180215
  55. CONCOR COR [Concomitant]
     Active Substance: BISOPROLOL FUMARATE
     Indication: PRODUCT USED FOR UNKNOWN INDICATION
     Dosage: UNK (ONGOING = CHECKED)
     Route: 065
  56. TRASTUZUMAB EMTANSINE [Suspect]
     Active Substance: ADO-TRASTUZUMAB EMTANSINE
     Dosage: 3.6 MG/M2, Q3W (INTRAVENOUS)
     Route: 042
     Dates: start: 20171212
  57. NOVALGIN [Concomitant]
     Dosage: UNK (ONGOING = NOT CHECKED)
     Route: 065
     Dates: start: 20171212, end: 20190907
  58. NOVALGIN [Concomitant]
     Dosage: UNK (ONGOING = NOT CHECKED)
     Route: 065
     Dates: start: 20190315, end: 20191003
  59. NOVALGIN [Concomitant]
     Dosage: UNK (UNK)
     Route: 065
     Dates: start: 20190509, end: 20190509
  60. DAFLON [Concomitant]
     Indication: PRODUCT USED FOR UNKNOWN INDICATION
     Dosage: UNK
     Route: 065
  61. TEMESTA [Concomitant]
     Indication: PRODUCT USED FOR UNKNOWN INDICATION
     Dosage: UNK (UNK)
     Route: 065
     Dates: start: 20190226
  62. NOVALGIN [Concomitant]
     Dosage: UNK (ONGOING = NOT CHECKED)
     Route: 065
     Dates: start: 20171212, end: 20190907
  63. DAFLON [Concomitant]
     Dosage: UNK (UNK)
     Route: 065
     Dates: end: 20190907
  64. FORTECORTIN [Concomitant]
     Active Substance: DEXAMETHASONE
     Dosage: UNK (ONGOING = CHECKED)
     Route: 065
     Dates: start: 20190215
  65. FENISTIL [Concomitant]
     Active Substance: DIMETHINDENE
     Dosage: UNK (UNK)
     Route: 065
     Dates: start: 20170327, end: 20180313
  66. MIRTAZAPIN [Concomitant]
     Active Substance: MIRTAZAPINE
     Dosage: UNK (ONGOING = CHECKED)
     Route: 065
     Dates: start: 20190315
  67. LASIX [Concomitant]
     Active Substance: FUROSEMIDE
     Dosage: UNK
     Route: 065
     Dates: end: 20190907
  68. LOVENOX [Concomitant]
     Active Substance: ENOXAPARIN SODIUM
     Indication: PRODUCT USED FOR UNKNOWN INDICATION
     Dosage: UNK
     Route: 065
     Dates: start: 20180126, end: 20180208
  69. PARACODIN [Concomitant]
     Indication: COUGH
     Dosage: UNK
     Route: 065
     Dates: start: 20171212, end: 20180115
  70. KALIORAL [Concomitant]
     Indication: PRODUCT USED FOR UNKNOWN INDICATION
     Dosage: UNK
     Route: 065
  71. LYRICA [Concomitant]
     Active Substance: PREGABALIN
     Indication: BACK PAIN
     Dosage: UNK (ONGOING = CHECKED)
     Route: 065
  72. VINORELBINE [Suspect]
     Active Substance: VINORELBINE TARTRATE
     Indication: PRODUCT USED FOR UNKNOWN INDICATION
     Dosage: 50 MG
     Route: 048
     Dates: start: 20170306, end: 20170530
  73. CAPECITABINE. [Suspect]
     Active Substance: CAPECITABINE
     Indication: HER2 POSITIVE BREAST CANCER
     Dosage: 3500 MG (3500 MG (RECEIVED DOSE ON 10/SEP/2018, MOST RECENT DOSE PRIOR TO THE EVENT: 20190527)
     Route: 048
     Dates: start: 20180904
  74. FORTECORTIN [Concomitant]
     Active Substance: DEXAMETHASONE
     Dosage: UNK (ONGOING = NOT CHECKED)
     Route: 065
     Dates: start: 20190215, end: 20190907
  75. PASPERTIN [Concomitant]
     Indication: PRODUCT USED FOR UNKNOWN INDICATION
     Dosage: UNK (ONGOING = NOT CHECKED)
     Route: 065
     Dates: start: 20171212, end: 20190907
  76. SUCRALFAT [Concomitant]
     Active Substance: SUCRALFATE
     Indication: PRODUCT USED FOR UNKNOWN INDICATION
     Dosage: UNK (ONGOING = CHECKED)
     Route: 065
     Dates: end: 20190907
  77. SUCRALFAT [Concomitant]
     Active Substance: SUCRALFATE
     Dosage: UNK (UNK)
     Route: 065

REACTIONS (3)
  - Respiratory tract infection [Recovered/Resolved]
  - Cough [Not Recovered/Not Resolved]
  - Dyspnoea [Not Recovered/Not Resolved]

NARRATIVE: CASE EVENT DATE: 20190415
